FAERS Safety Report 4648729-4 (Version None)
Quarter: 2005Q2

REPORT INFORMATION
  Report Type: 
  Country: None (occurrence: None)
  Receive Date: 20050427
  Receipt Date: 20050406
  Transmission Date: 20051028
  Serious: Yes (Other)
  Sender: FDA-Public Use
  Company Number: USA050495363

PATIENT
  Sex: Male

DRUGS (3)
  1. CYMBALTA [Suspect]
     Dosage: 30 MG
     Dates: start: 20050401, end: 20050403
  2. METHADONE HCL [Concomitant]
  3. CLONAPIN(CLONAZEPAM) [Concomitant]

REACTIONS (2)
  - DEPRESSION [None]
  - SEROTONIN SYNDROME [None]
